FAERS Safety Report 21589098 (Version 5)
Quarter: 2023Q2

REPORT INFORMATION
  Report Type: Report from Study
  Country: US (occurrence: US)
  Receive Date: 20221114
  Receipt Date: 20230608
  Transmission Date: 20230721
  Serious: Yes (Hospitalization, Other)
  Sender: FDA-Public Use
  Company Number: US-INSMED-2022-01985-USAA

PATIENT
  Sex: Male

DRUGS (15)
  1. ARIKAYCE [Suspect]
     Active Substance: AMIKACIN
     Indication: Mycobacterium avium complex infection
     Dosage: 590 MILLIGRAM, QD
     Route: 055
     Dates: start: 202205, end: 202205
  2. ARIKAYCE [Suspect]
     Active Substance: AMIKACIN
     Dosage: 590 MILLIGRAM, EVERY OTHER DAY
     Route: 055
     Dates: start: 202206
  3. AZITHROMYCIN [Suspect]
     Active Substance: AZITHROMYCIN
     Indication: Product used for unknown indication
     Dosage: 250 MILLIGRAM, THREE TIMES A WEEK
     Route: 048
     Dates: end: 202207
  4. AZITHROMYCIN [Suspect]
     Active Substance: AZITHROMYCIN
     Dosage: UNK, QOD
     Route: 048
     Dates: start: 202207
  5. RIFABUTIN [Suspect]
     Active Substance: RIFABUTIN
     Indication: Product used for unknown indication
     Dosage: 150 MILLIGRAM, TID
     Route: 048
     Dates: end: 202207
  6. RIFABUTIN [Suspect]
     Active Substance: RIFABUTIN
     Dosage: UNK, QOD
     Route: 048
     Dates: start: 202207
  7. ETHAMBUTOL [Suspect]
     Active Substance: ETHAMBUTOL HYDROCHLORIDE
     Indication: Mycobacterium avium complex infection
     Dosage: 1600 MILLIGRAM, THREE TIMES A WEEK
     Route: 048
     Dates: end: 2022
  8. ETHAMBUTOL [Suspect]
     Active Substance: ETHAMBUTOL HYDROCHLORIDE
     Dosage: 400 MILLIGRAM, QID
     Route: 048
     Dates: start: 202206, end: 202207
  9. ETHAMBUTOL [Suspect]
     Active Substance: ETHAMBUTOL HYDROCHLORIDE
     Dosage: UNK, QOD
     Route: 048
     Dates: start: 202207
  10. ELIQUIS [Suspect]
     Active Substance: APIXABAN
     Indication: Product used for unknown indication
     Dosage: UNK
     Route: 065
     Dates: start: 2022, end: 202206
  11. XARELTO [Suspect]
     Active Substance: RIVAROXABAN
     Indication: Product used for unknown indication
     Dosage: 20 MILLIGRAM, QD
     Route: 065
     Dates: start: 202206
  12. ATORVASTATIN [Suspect]
     Active Substance: ATORVASTATIN
     Indication: Product used for unknown indication
     Dosage: 40 MILLIGRAM, QD
     Route: 048
     Dates: end: 202207
  13. ATORVASTATIN [Suspect]
     Active Substance: ATORVASTATIN
     Dosage: UNK, QOD
     Route: 048
     Dates: start: 202207
  14. METOPROLOL [Suspect]
     Active Substance: METOPROLOL
     Indication: Product used for unknown indication
     Dosage: 25 MILLIGRAM, BID
     Route: 048
     Dates: end: 202207
  15. METOPROLOL [Suspect]
     Active Substance: METOPROLOL
     Dosage: UNK, QOD
     Route: 048
     Dates: start: 202207

REACTIONS (15)
  - Hospitalisation [Unknown]
  - Ischaemic stroke [Recovered/Resolved]
  - Feeding disorder [Recovered/Resolved]
  - Ageusia [Not Recovered/Not Resolved]
  - Anosmia [Recovering/Resolving]
  - Urticaria [Recovered/Resolved]
  - Exercise tolerance decreased [Recovering/Resolving]
  - Sputum increased [Recovering/Resolving]
  - Anxiety [Recovering/Resolving]
  - Vomiting [Recovered/Resolved]
  - Cough [Not Recovered/Not Resolved]
  - Nausea [Recovered/Resolved]
  - Wheezing [Recovering/Resolving]
  - Product dose omission issue [Unknown]
  - Therapy interrupted [Unknown]

NARRATIVE: CASE EVENT DATE: 20220101
